FAERS Safety Report 6555280-3 (Version None)
Quarter: 2010Q1

REPORT INFORMATION
  Report Type: 
  Country: None (occurrence: None)
  Receive Date: 20100128
  Receipt Date: 20090303
  Transmission Date: 20100710
  Serious: No
  Sender: FDA-Public Use
  Company Number: A0772142A

PATIENT
  Sex: Female

DRUGS (1)
  1. BUPROPION HYDROCHLORIDE [Suspect]
     Indication: DEPRESSION

REACTIONS (2)
  - DRUG EFFECT DECREASED [None]
  - HEADACHE [None]
